FAERS Safety Report 8048113-X (Version None)
Quarter: 2012Q1

REPORT INFORMATION
  Report Type: 
  Country: None (occurrence: None)
  Receive Date: 20120112
  Receipt Date: 20120112
  Transmission Date: 20120608
  Serious: Yes (Hospitalization)
  Sender: FDA-Public Use
  Company Number: None

PATIENT
  Age: 72 Year
  Sex: Female
  Weight: 64.8644 kg

DRUGS (2)
  1. VITAMINS NOS (VITAMINS NOS) [Concomitant]
  2. HYDROGEN PEROXIDE SOLUTION [Suspect]
     Indication: DENTAL CARE
     Dosage: 2 IN 1 DAY, ORAL
     Route: 048
     Dates: start: 20110101, end: 20111220

REACTIONS (2)
  - ORAL PAIN [None]
  - HYPOAESTHESIA ORAL [None]
